FAERS Safety Report 8981166 (Version 2)
Quarter: 2013Q3

REPORT INFORMATION
  Report Type: Spontaneous
  Country: CN (occurrence: CN)
  Receive Date: 20121221
  Receipt Date: 20130829
  Transmission Date: 20140515
  Serious: Yes (Hospitalization)
  Sender: FDA-Public Use
  Company Number: CN-GENZYME-CERZ-1002747

PATIENT
  Age: 18 Year
  Sex: Male
  Weight: 66 kg

DRUGS (2)
  1. CEREZYME [Suspect]
     Indication: GAUCHER^S DISEASE
     Dosage: 12.1 U/KG, Q2W
     Route: 042
     Dates: start: 199905
  2. CEREZYME [Suspect]
     Dosage: 30.30 U/KG, Q2W
     Route: 042

REACTIONS (3)
  - Atelectasis [Not Recovered/Not Resolved]
  - Condition aggravated [Not Recovered/Not Resolved]
  - Discomfort [Not Recovered/Not Resolved]
